FAERS Safety Report 8217666-0 (Version None)
Quarter: 2012Q1

REPORT INFORMATION
  Report Type: 
  Country: None (occurrence: None)
  Receive Date: 20120314
  Receipt Date: 20120228
  Transmission Date: 20120608
  Serious: Yes (Death)
  Sender: FDA-Public Use
  Company Number: FK201200624

PATIENT
  Age: 18 Year
  Sex: Female

DRUGS (5)
  1. FLURAZEPAM [Concomitant]
  2. ACETAMINOPHEN [Concomitant]
  3. IMIPRAMINE [Concomitant]
  4. DIAZEPAM [Concomitant]
  5. HALOPERIDOL [Suspect]
     Indication: AGITATION
     Dosage: 1 MG, FREQUENCY AND ROUTE NOT PROVIDED, UNKNOWN

REACTIONS (5)
  - CARDIAC ARREST [None]
  - ELECTROCARDIOGRAM QT PROLONGED [None]
  - HYPERPYREXIA [None]
  - BRONCHOPNEUMONIA [None]
  - TORSADE DE POINTES [None]
